FAERS Safety Report 25798611 (Version 1)
Quarter: 2025Q3

REPORT INFORMATION
  Report Type: Spontaneous
  Country: US (occurrence: US)
  Receive Date: 20250913
  Receipt Date: 20250913
  Transmission Date: 20251021
  Serious: No
  Sender: AMGEN
  Company Number: US-AMGEN-USASP2025181681

PATIENT
  Age: 41 Year
  Sex: Male

DRUGS (6)
  1. OTEZLA [Suspect]
     Active Substance: APREMILAST
     Indication: Psoriasis
     Dosage: 30 MILLIGRAM, BID
     Route: 048
     Dates: start: 20240713
  2. CALCIPOTRIENE [Concomitant]
     Active Substance: CALCIPOTRIENE
  3. CLOBETASOL [Concomitant]
     Active Substance: CLOBETASOL
  4. LEXAPRO [Concomitant]
     Active Substance: ESCITALOPRAM OXALATE
  5. OSELTAMIVIR [Concomitant]
     Active Substance: OSELTAMIVIR
  6. VTAMA [Concomitant]
     Active Substance: TAPINAROF

REACTIONS (1)
  - Psoriasis [Not Recovered/Not Resolved]

NARRATIVE: CASE EVENT DATE: 20250801
